FAERS Safety Report 15354302 (Version 1)
Quarter: 2018Q3

REPORT INFORMATION
  Report Type: Spontaneous
  Country: KR (occurrence: KR)
  Receive Date: 20180906
  Receipt Date: 20180906
  Transmission Date: 20181010
  Serious: Yes (Other)
  Sender: FDA-Public Use
  Company Number: KR-BAXTER-2018BAX022925

PATIENT
  Sex: Female

DRUGS (22)
  1. DOCETAXEL. [Suspect]
     Active Substance: DOCETAXEL
     Indication: BREAST CANCER
     Dosage: NEO?ADJUVANT CHEMOTHERAPY, 8 CYCLES
     Route: 065
  2. CARBOPLATIN. [Suspect]
     Active Substance: CARBOPLATIN
     Indication: BRCA2 GENE MUTATION
  3. FLUOROURACIL. [Suspect]
     Active Substance: FLUOROURACIL
     Indication: BRCA2 GENE MUTATION
  4. HOLOXAN 1000MG INJ (IFOSFAMIDE) [Suspect]
     Active Substance: IFOSFAMIDE
     Indication: BREAST CANCER
     Dosage: FOURTH LINE THERAPY, 2 CYCLES
     Route: 065
  5. PACLITAXEL. [Suspect]
     Active Substance: PACLITAXEL
     Indication: BRCA2 GENE MUTATION
  6. FLUOROURACIL. [Suspect]
     Active Substance: FLUOROURACIL
     Indication: BREAST CANCER
     Dosage: SECOND LINE THERAPY, 13 CYCLES
     Route: 065
  7. ENDOXAN 500MG INJ. (CYCLOPHOSPHAMIDE) [Suspect]
     Active Substance: CYCLOPHOSPHAMIDE
     Indication: BREAST CANCER
     Dosage: NEO?ADJUVANT CHEMOTHERAPY, 8 CYCLES
     Route: 065
  8. ENDOXAN 500MG INJ. (CYCLOPHOSPHAMIDE) [Suspect]
     Active Substance: CYCLOPHOSPHAMIDE
     Indication: BRCA2 GENE MUTATION
     Dosage: SECOND LINE THERAPY, 13 CYCLES
     Route: 065
  9. HOLOXAN 1000MG INJ (IFOSFAMIDE) [Suspect]
     Active Substance: IFOSFAMIDE
     Indication: BRCA2 GENE MUTATION
  10. DOXORUBICIN [Suspect]
     Active Substance: DOXORUBICIN
     Indication: BRCA2 GENE MUTATION
  11. CARBOPLATIN. [Suspect]
     Active Substance: CARBOPLATIN
     Indication: BREAST CANCER
     Dosage: FIRST LINE THERAPY, 9 CYCLES
     Route: 065
  12. CISPLATIN. [Suspect]
     Active Substance: CISPLATIN
     Indication: BRCA2 GENE MUTATION
  13. AVASTIN [Suspect]
     Active Substance: BEVACIZUMAB
     Indication: BRCA2 GENE MUTATION
  14. METHOTREXATE. [Suspect]
     Active Substance: METHOTREXATE
     Indication: BRCA2 GENE MUTATION
  15. GEMCITABINE [Suspect]
     Active Substance: GEMCITABINE\GEMCITABINE HYDROCHLORIDE
     Indication: BREAST CANCER
     Dosage: THIRD LINE THERAPY, 7 CYCLES
     Route: 065
  16. GEMCITABINE [Suspect]
     Active Substance: GEMCITABINE\GEMCITABINE HYDROCHLORIDE
     Indication: BRCA2 GENE MUTATION
  17. CISPLATIN. [Suspect]
     Active Substance: CISPLATIN
     Indication: BREAST CANCER
     Dosage: THIRD LINE THERAPY, 7 CYCLES
     Route: 065
  18. DOXORUBICIN [Suspect]
     Active Substance: DOXORUBICIN
     Indication: BREAST CANCER
     Dosage: NEO?ADJUVANT CHEMOTHERAPY, 8 CYCLES
     Route: 065
  19. AVASTIN [Suspect]
     Active Substance: BEVACIZUMAB
     Indication: BREAST CANCER
     Dosage: FIRST LINE THERAPY, 9 CYCLES
     Route: 065
  20. METHOTREXATE. [Suspect]
     Active Substance: METHOTREXATE
     Indication: BREAST CANCER
     Dosage: SECOND LINE THERAPY, 13 CYCLES
     Route: 065
  21. DOCETAXEL. [Suspect]
     Active Substance: DOCETAXEL
     Indication: BRCA2 GENE MUTATION
  22. PACLITAXEL. [Suspect]
     Active Substance: PACLITAXEL
     Indication: BREAST CANCER
     Dosage: FIRST LINE THERAPY, 9 CYCLES
     Route: 065

REACTIONS (2)
  - Disease progression [Unknown]
  - Drug resistance [Unknown]
